FAERS Safety Report 7421014-3 (Version None)
Quarter: 2011Q2

REPORT INFORMATION
  Report Type: 
  Country: None (occurrence: None)
  Receive Date: 20110418
  Receipt Date: 20110414
  Transmission Date: 20111010
  Serious: Yes (Death, Other)
  Sender: FDA-Public Use
  Company Number: PHHY2011GB31582

PATIENT
  Age: 35 Year
  Sex: Male

DRUGS (7)
  1. ALBUTEROL SULFATE AUTOHALER [Concomitant]
     Dosage: UNK UKN, UNK
  2. SALMETEROL [Concomitant]
     Dosage: UNK UKN, UNK
  3. OMALIZUMAB [Concomitant]
     Dosage: UNK UKN, UNK
     Dates: start: 20080101
  4. THEOPHYLLINE [Concomitant]
     Dosage: UNK UKN, UNK
  5. OPIOIDS [Concomitant]
     Indication: BACK PAIN
     Dosage: UNK UKN, UNK
  6. PREDNISOLONE [Suspect]
     Dosage: 60 MG, UNK
     Route: 048
  7. FLUTICASONE PROPIONATE [Suspect]
     Dosage: UNK UKN, UNK

REACTIONS (18)
  - CUSHINGOID [None]
  - SENSORY DISTURBANCE [None]
  - HYPOAESTHESIA [None]
  - ERECTILE DYSFUNCTION [None]
  - ASTHMA [None]
  - CLONUS [None]
  - ATOPY [None]
  - SPINAL CORD COMPRESSION [None]
  - WEIGHT INCREASED [None]
  - DRUG DEPENDENCE [None]
  - ASTHENIA [None]
  - HYPERREFLEXIA [None]
  - EPIDURAL LIPOMATOSIS [None]
  - LOSS OF CONTROL OF LEGS [None]
  - URINARY INCONTINENCE [None]
  - MUSCULAR WEAKNESS [None]
  - SENSORY LOSS [None]
  - PNEUMONIA [None]
